FAERS Safety Report 13867545 (Version 2)
Quarter: 2017Q3

REPORT INFORMATION
  Report Type: Report from Study
  Country: US (occurrence: US)
  Receive Date: 20170814
  Receipt Date: 20170817
  Transmission Date: 20171127
  Serious: Yes (Hospitalization, Other)
  Sender: FDA-Public Use
  Company Number: US-GILEAD-2017-0288052

PATIENT
  Age: 56 Year
  Sex: Female

DRUGS (1)
  1. AMBRISENTAN [Suspect]
     Active Substance: AMBRISENTAN
     Indication: PRODUCT USED FOR UNKNOWN INDICATION
     Dosage: 5 MG, UNK
     Route: 065
     Dates: start: 20170405

REACTIONS (7)
  - Malaise [Unknown]
  - Dialysis [Unknown]
  - Intra-abdominal fluid collection [Not Recovered/Not Resolved]
  - Pyrexia [Not Recovered/Not Resolved]
  - Apparent death [Unknown]
  - Urinary tract infection [Unknown]
  - Unevaluable event [Unknown]
